FAERS Safety Report 4513099-9 (Version None)
Quarter: 2004Q4

REPORT INFORMATION
  Report Type: 
  Country: None (occurrence: None)
  Receive Date: 20040928
  Receipt Date: 20040628
  Transmission Date: 20050328
  Serious: No
  Sender: FDA-Public Use
  Company Number: 04P-163-0264928-00

PATIENT
  Age: 64 Year
  Sex: 0

DRUGS (1)
  1. HUMIRA [Suspect]
     Dosage: SUBCUTANEOUS
     Route: 058

REACTIONS (4)
  - INJECTION SITE PAIN [None]
  - INJECTION SITE PRURITUS [None]
  - INJECTION SITE STINGING [None]
  - INJECTION SITE SWELLING [None]
